FAERS Safety Report 17803092 (Version 1)
Quarter: 2020Q2

REPORT INFORMATION
  Report Type: Spontaneous
  Country: CN (occurrence: CN)
  Receive Date: 20200519
  Receipt Date: 20200519
  Transmission Date: 20200714
  Serious: Yes (Hospitalization)
  Sender: FDA-Public Use
  Company Number: CN-FRESENIUS KABI-FK202004751

PATIENT
  Age: 15 Year
  Sex: Male
  Weight: 80 kg

DRUGS (1)
  1. VOLUVEN [Suspect]
     Active Substance: HYDROXYETHYL STARCH 130/0.4
     Indication: VOLUME BLOOD DECREASED
     Dosage: 500 ML/DAY
     Route: 041
     Dates: start: 20200504, end: 20200504

REACTIONS (3)
  - Dyspnoea [Recovering/Resolving]
  - Rash [Recovering/Resolving]
  - Pruritus [Recovering/Resolving]

NARRATIVE: CASE EVENT DATE: 20200504
